FAERS Safety Report 18943650 (Version 1)
Quarter: 2021Q1

REPORT INFORMATION
  Report Type: Spontaneous
  Country: US (occurrence: US)
  Receive Date: 20210226
  Receipt Date: 20210226
  Transmission Date: 20210420
  Serious: No
  Sender: FDA-Public Use
  Company Number: US-ALLERGAN-2009917US

PATIENT
  Age: 61 Year
  Sex: Female

DRUGS (2)
  1. SAVELLA [Suspect]
     Active Substance: MILNACIPRAN HYDROCHLORIDE
     Indication: FIBROMYALGIA
     Dosage: UNK, TITRATION
     Dates: start: 201810
  2. SAVELLA [Suspect]
     Active Substance: MILNACIPRAN HYDROCHLORIDE
     Dosage: 100 MG, QD
     Dates: end: 201912

REACTIONS (7)
  - Cough [Not Recovered/Not Resolved]
  - Multiple injuries [Unknown]
  - Malaise [Unknown]
  - Micturition urgency [Unknown]
  - Pain [Unknown]
  - Feeling jittery [Unknown]
  - Dysuria [Unknown]
